FAERS Safety Report 7635496-5 (Version None)
Quarter: 2011Q3

REPORT INFORMATION
  Report Type: 
  Country: None (occurrence: None)
  Receive Date: 20110726
  Receipt Date: 20110714
  Transmission Date: 20111222
  Serious: Yes (Hospitalization)
  Sender: FDA-Public Use
  Company Number: GB-RB-027155-11

PATIENT
  Age: 87 Year
  Sex: Male

DRUGS (2)
  1. SCHOLL CORN REMOVER [Suspect]
  2. ATENOLOL [Concomitant]

REACTIONS (1)
  - ULCER [None]
